FAERS Safety Report 20130618 (Version 1)
Quarter: 2021Q4

REPORT INFORMATION
  Report Type: Report from Study
  Country: US (occurrence: US)
  Receive Date: 20211130
  Receipt Date: 20211130
  Transmission Date: 20220304
  Serious: Yes (Other)
  Sender: FDA-Public Use
  Company Number: US-JAZZ-2021-US-020961

PATIENT
  Sex: Male

DRUGS (15)
  1. XYREM [Suspect]
     Active Substance: SODIUM OXYBATE
     Indication: Narcolepsy
     Dosage: 2.25 GRAM, BID
     Route: 048
     Dates: start: 201201, end: 201201
  2. XYREM [Suspect]
     Active Substance: SODIUM OXYBATE
     Indication: Cataplexy
     Dosage: DOSE ADJUSTMENT
     Route: 048
     Dates: start: 201201, end: 201302
  3. XYREM [Suspect]
     Active Substance: SODIUM OXYBATE
     Dosage: 4.5 GRAM, BID
     Route: 048
     Dates: start: 201302
  4. LISINOPRIL [Concomitant]
     Active Substance: LISINOPRIL
     Dosage: UNKNOWN
     Dates: start: 20140603
  5. CETIRIZINE [Concomitant]
     Active Substance: CETIRIZINE HYDROCHLORIDE
     Dosage: UNKNOWN
     Dates: start: 20151130
  6. BUPROPION [Concomitant]
     Active Substance: BUPROPION
     Dosage: UNKNOWN
     Dates: start: 20150820
  7. PROVIGIL [Concomitant]
     Active Substance: MODAFINIL
     Dosage: UNKNOWN
     Dates: start: 20150513
  8. LATUDA [Concomitant]
     Active Substance: LURASIDONE HYDROCHLORIDE
     Dosage: UNKNOWN
     Dates: start: 20151211
  9. GABAPENTIN [Concomitant]
     Active Substance: GABAPENTIN
     Dosage: UNKNOWN
     Dates: start: 20151211
  10. RHODIOLA SACRA ROOT [Concomitant]
     Dosage: UNKNOWN
     Dates: start: 20151211
  11. VITAMIN D3 [Concomitant]
     Active Substance: CHOLECALCIFEROL
     Dosage: UNKNOWN
     Dates: start: 20151211
  12. ASPIRIN [Concomitant]
     Active Substance: ASPIRIN
     Dosage: UNKNOWN
     Dates: start: 20151211
  13. ALCOHOL [Concomitant]
     Active Substance: ALCOHOL
     Dosage: UNKNOWN
     Dates: start: 20151211
  14. PROPRANOLOL [Concomitant]
     Active Substance: PROPRANOLOL HYDROCHLORIDE
     Dosage: UNKNOWN
     Dates: start: 20211101
  15. MACUVITE [XANTOFYL;ZEAXANTHIN] [Concomitant]
     Dosage: UNKNOWN
     Dates: start: 20211101

REACTIONS (1)
  - Macular degeneration [Unknown]
